FAERS Safety Report 8187932-6 (Version None)
Quarter: 2012Q1

REPORT INFORMATION
  Report Type: 
  Country: None (occurrence: None)
  Receive Date: 20120306
  Receipt Date: 20111214
  Transmission Date: 20120608
  Serious: Yes (Other)
  Sender: FDA-Public Use
  Company Number: JP-GLAXOSMITHKLINE-B0769635A

PATIENT
  Sex: Female

DRUGS (6)
  1. DEPAKENE [Concomitant]
     Indication: EPILEPSY
     Dosage: 800MG PER DAY
     Route: 048
  2. TEGRETOL [Concomitant]
     Indication: EPILEPSY
     Dosage: 600MG PER DAY
     Route: 048
     Dates: end: 20111101
  3. DIAZEPAM [Concomitant]
     Indication: URINARY INCONTINENCE
     Dosage: 2MG PER DAY
     Route: 048
  4. CLONAZEPAM [Concomitant]
     Indication: EPILEPSY
     Dosage: .5MG PER DAY
     Route: 048
  5. TOFRANIL [Concomitant]
     Indication: URINARY INCONTINENCE
     Dosage: 40MG PER DAY
     Route: 048
  6. LAMICTAL [Suspect]
     Indication: EPILEPSY
     Dosage: 5MG TWICE PER DAY
     Route: 048
     Dates: start: 20111130, end: 20111204

REACTIONS (5)
  - EPILEPSY [None]
  - POLLAKIURIA [None]
  - CONVULSION [None]
  - SPEECH DISORDER [None]
  - DYSLALIA [None]
